FAERS Safety Report 7472046-0 (Version None)
Quarter: 2011Q2

REPORT INFORMATION
  Report Type: 
  Country: None (occurrence: None)
  Receive Date: 20110511
  Receipt Date: 20101101
  Transmission Date: 20111010
  Serious: No
  Sender: FDA-Public Use
  Company Number: A0889979A

PATIENT
  Age: 70 Year
  Sex: Female

DRUGS (7)
  1. SPIRIVA [Concomitant]
  2. CYMBALTA [Concomitant]
  3. VERAPAMIL [Concomitant]
  4. PREVACID [Concomitant]
  5. TYKERB [Suspect]
     Indication: BREAST CANCER
     Dosage: 4TAB PER DAY
     Route: 048
     Dates: start: 20091101
  6. SINGULAIR [Concomitant]
  7. HERCEPTIN [Concomitant]

REACTIONS (3)
  - HYPOAESTHESIA [None]
  - RASH [None]
  - DIARRHOEA [None]
